FAERS Safety Report 9628712 (Version 1)
Quarter: 2013Q4

REPORT INFORMATION
  Report Type: Spontaneous
  Country: IT (occurrence: IT)
  Receive Date: 20131017
  Receipt Date: 20131017
  Transmission Date: 20140711
  Serious: Yes (Hospitalization)
  Sender: FDA-Public Use
  Company Number: IT-MYLANLABS-2013S1022519

PATIENT
  Age: 36 Year
  Sex: Male

DRUGS (2)
  1. MIRTAZAPINE [Suspect]
     Indication: DEPRESSION
     Route: 048
     Dates: start: 20130920, end: 20130920
  2. XANAX [Suspect]
     Indication: DEPRESSION
     Route: 048
     Dates: start: 20130920, end: 20130920

REACTIONS (2)
  - Toxicity to various agents [Recovered/Resolved]
  - Sedation [Recovered/Resolved]
